FAERS Safety Report 7018157-5 (Version None)
Quarter: 2010Q3

REPORT INFORMATION
  Report Type: 
  Country: None (occurrence: None)
  Receive Date: 20100928
  Receipt Date: 20100915
  Transmission Date: 20110219
  Serious: Yes (Hospitalization)
  Sender: FDA-Public Use
  Company Number: KR-ROCHE-714118

PATIENT
  Sex: Female
  Weight: 45 kg

DRUGS (21)
  1. BEVACIZUMAB [Suspect]
     Indication: BREAST CANCER
     Dosage: DOSAGE FORM VIALS, DOSE LEVEL 15 MG/KG
     Route: 042
     Dates: start: 20100608, end: 20100630
  2. TRASTUZUMAB [Suspect]
     Indication: BREAST CANCER
     Dosage: LOADING DOSE
     Route: 042
     Dates: start: 20100608
  3. TRASTUZUMAB [Suspect]
     Dosage: LAST DOSE PRIOR TO SAE 30 JUNE 2010, DOSAGE FORM VIALS, DOSE 6 MG/KG
     Route: 042
     Dates: start: 20100630
  4. DOCETAXEL [Suspect]
     Indication: BREAST CANCER
     Dosage: DOSAGE FORM: VIALS, DOSE:75 MG/M2
     Route: 042
     Dates: start: 20100608
  5. CARBOPLATIN [Suspect]
     Indication: BREAST CANCER
     Dosage: DOSAGE FORM: VIALS, DOSE LEVEL 6 AUC
     Route: 042
     Dates: start: 20100608
  6. ISONIAZID [Concomitant]
     Indication: PULMONARY TUBERCULOSIS
     Route: 065
     Dates: start: 20100710
  7. MYAMBUTOL [Concomitant]
     Indication: PULMONARY TUBERCULOSIS
     Route: 065
     Dates: start: 20100710
  8. PYRAZINAMIDE [Concomitant]
     Indication: TUBERCULOSIS
     Route: 065
     Dates: start: 20100710
  9. PIRIDOXINA [Concomitant]
     Indication: PULMONARY TUBERCULOSIS
     Route: 065
     Dates: start: 20100710
  10. RIFAMPIN [Concomitant]
     Indication: PULMONARY TUBERCULOSIS
     Route: 065
     Dates: start: 20100710
  11. URSA [Concomitant]
     Dates: start: 20100705, end: 20100707
  12. GODEX CAP [Concomitant]
     Dates: start: 20100705, end: 20100707
  13. ATACAND [Concomitant]
     Dates: start: 20100704
  14. DUAC [Concomitant]
     Dates: start: 20100708, end: 20100708
  15. HC LOTION [Concomitant]
     Dates: start: 20100708, end: 20100708
  16. TRIAXONE [Concomitant]
     Dates: start: 20100708, end: 20100708
  17. AMIKACIN SULFATE [Concomitant]
     Dates: start: 20100708, end: 20100708
  18. TAZOPERAN [Concomitant]
     Dates: start: 20100108, end: 20100711
  19. NEUTROGIN [Concomitant]
     Dates: start: 20100708, end: 20100709
  20. ISEPACIN [Concomitant]
     Dates: start: 20100708, end: 20100711
  21. TYLENOL (CAPLET) [Concomitant]
     Dates: start: 20100708, end: 20100708

REACTIONS (3)
  - ASTHENIA [None]
  - FEBRILE NEUTROPENIA [None]
  - TUBERCULOSIS [None]
